FAERS Safety Report 7523518-1 (Version None)
Quarter: 2011Q2

REPORT INFORMATION
  Report Type: 
  Country: None (occurrence: None)
  Receive Date: 20110603
  Receipt Date: 20110524
  Transmission Date: 20111010
  Serious: Yes (Other)
  Sender: FDA-Public Use
  Company Number: CHPA2011US07144

PATIENT
  Age: 61 Year
  Sex: Female
  Weight: 62.132 kg

DRUGS (5)
  1. BENEFIBER W/ WHEAT DEXTRIN [Suspect]
     Indication: BOWEL MOVEMENT IRREGULARITY
     Dosage: 9 DF, QHS
     Route: 048
  2. THYROID TAB [Concomitant]
     Dosage: UNK, UNK
  3. FISH OIL [Concomitant]
     Dosage: UNK, UNK
  4. MULTI-VITAMINS [Concomitant]
     Dosage: UNK, UNK
  5. CALCIUM CARBONATE [Concomitant]
     Dosage: UNK, UNK

REACTIONS (9)
  - WRONG TECHNIQUE IN DRUG USAGE PROCESS [None]
  - CYSTITIS [None]
  - ABDOMINAL PAIN UPPER [None]
  - EAR INFECTION [None]
  - THERAPEUTIC RESPONSE UNEXPECTED [None]
  - DIARRHOEA [None]
  - MUSCULOSKELETAL DISORDER [None]
  - DRUG INEFFECTIVE FOR UNAPPROVED INDICATION [None]
  - INCORRECT DOSE ADMINISTERED [None]
